FAERS Safety Report 12203124 (Version 1)
Quarter: 2016Q1

REPORT INFORMATION
  Report Type: Spontaneous
  Country: US (occurrence: None)
  Receive Date: 20160321
  Receipt Date: 20160321
  Transmission Date: 20160526
  Serious: Yes (Other)
  Sender: FDA-Public Use
  Company Number: None

PATIENT
  Age: 63 Year
  Sex: Male

DRUGS (8)
  1. MULTIVITAMIN [Concomitant]
     Active Substance: VITAMINS
  2. LISINOPRIL. [Concomitant]
     Active Substance: LISINOPRIL
  3. PROAIR HFA [Concomitant]
     Active Substance: ALBUTEROL SULFATE
  4. SUTENT [Suspect]
     Active Substance: SUNITINIB MALATE
     Dosage: 50MG QD PO X 4 WEEKS THEN 2 WEEKS REST
     Route: 048
  5. SPIRIVA [Concomitant]
     Active Substance: TIOTROPIUM BROMIDE MONOHYDRATE
  6. ASPIRIN. [Concomitant]
     Active Substance: ASPIRIN
  7. COLACE [Concomitant]
     Active Substance: DOCUSATE SODIUM
  8. NORCO [Concomitant]
     Active Substance: ACETAMINOPHEN\HYDROCODONE BITARTRATE

REACTIONS (2)
  - Palmar-plantar erythrodysaesthesia syndrome [None]
  - Burning sensation [None]

NARRATIVE: CASE EVENT DATE: 20160310
